FAERS Safety Report 9652173 (Version 1)
Quarter: 2013Q4

REPORT INFORMATION
  Report Type: Spontaneous
  Country: US (occurrence: US)
  Receive Date: 20131029
  Receipt Date: 20131029
  Transmission Date: 20140711
  Serious: Yes (Other)
  Sender: FDA-Public Use
  Company Number: US-ABBVIE-13P-163-1160041-00

PATIENT
  Sex: Male
  Weight: 122.58 kg

DRUGS (4)
  1. TRICOR [Suspect]
     Indication: BLOOD CHOLESTEROL INCREASED
     Dates: start: 2009, end: 201302
  2. DEPAKOTE [Concomitant]
     Indication: AFFECTIVE DISORDER
  3. METFORMIN [Concomitant]
     Indication: DIABETES MELLITUS
  4. SIMVASTATIN [Concomitant]
     Indication: BLOOD CHOLESTEROL INCREASED

REACTIONS (3)
  - Thyroid cancer [Recovered/Resolved]
  - Inflammation [Unknown]
  - High density lipoprotein decreased [Not Recovered/Not Resolved]
